FAERS Safety Report 9096453 (Version 1)
Quarter: 2013Q1

REPORT INFORMATION
  Report Type: Spontaneous
  Country: TR (occurrence: None)
  Receive Date: 20130124
  Receipt Date: 20130124
  Transmission Date: 20140127
  Serious: Yes (Hospitalization)
  Sender: FDA-Public Use
  Company Number: 2013P1000715

PATIENT
  Age: 32 Year
  Sex: Female

DRUGS (1)
  1. RISPERIDONE [Suspect]
     Indication: SCHIZOPHRENIA, PARANOID TYPE

REACTIONS (9)
  - Local swelling [None]
  - Local swelling [None]
  - Amenorrhoea [None]
  - Weight increased [None]
  - Skin wrinkling [None]
  - Dysphonia [None]
  - Pituitary tumour benign [None]
  - Hemianopia [None]
  - Scotoma [None]
